FAERS Safety Report 5149000-7 (Version None)
Quarter: 2006Q4

REPORT INFORMATION
  Report Type: 
  Country: None (occurrence: None)
  Receive Date: 20061113
  Receipt Date: 20061102
  Transmission Date: 20070319
  Serious: Yes (Other)
  Sender: FDA-Public Use
  Company Number: PHBS2006PT17137

PATIENT
  Age: 14 Year
  Sex: Male
  Weight: 55.7 kg

DRUGS (4)
  1. LEPONEX [Suspect]
     Indication: PSYCHOTIC DISORDER
     Dosage: 450 MG/DAY
     Route: 048
     Dates: end: 20050401
  2. CLOZAPINE [Suspect]
     Indication: PSYCHOTIC DISORDER
     Dosage: 450 MG/DAY
     Route: 048
     Dates: start: 20050501
  3. FLUOXETINE [Concomitant]
     Route: 048
  4. FLUVOXAMINE MALEATE [Suspect]

REACTIONS (10)
  - DYSPHAGIA [None]
  - OBSESSIVE-COMPULSIVE DISORDER [None]
  - PROSTRATION [None]
  - SALIVARY HYPERSECRETION [None]
  - SKIN ODOUR ABNORMAL [None]
  - SOMNOLENCE [None]
  - SWEAT DISCOLOURATION [None]
  - TOOTH DISCOLOURATION [None]
  - TREMOR [None]
  - URINE ODOUR ABNORMAL [None]
